FAERS Safety Report 6600718-6 (Version None)
Quarter: 2010Q1

REPORT INFORMATION
  Report Type: 
  Country: None (occurrence: None)
  Receive Date: 20100223
  Receipt Date: 20100223
  Transmission Date: 20100710
  Serious: Yes (Other)
  Sender: FDA-Public Use
  Company Number: None

PATIENT
  Age: 49 Year
  Sex: Female
  Weight: 72.5755 kg

DRUGS (1)
  1. ALENDRONATE SODIUM [Suspect]
     Indication: OSTEOPENIA
     Dosage: 70MG ONCE WEEKLY BUCCAL
     Route: 002
     Dates: start: 20090113, end: 20091002

REACTIONS (4)
  - CONSTIPATION [None]
  - GASTRIC ULCER [None]
  - GASTRITIS [None]
  - MALAISE [None]
